FAERS Safety Report 13152156 (Version 6)
Quarter: 2017Q3

REPORT INFORMATION
  Report Type: Spontaneous
  Country: KR (occurrence: KR)
  Receive Date: 20170125
  Receipt Date: 20170823
  Transmission Date: 20171127
  Serious: Yes (Hospitalization, Other)
  Sender: FDA-Public Use
  Company Number: KR-009507513-1701KOR010236

PATIENT
  Age: 55 Year
  Sex: Male
  Weight: 75.9 kg

DRUGS (61)
  1. EMEND (FOSAPREPITANT DIMEGLUMINE) [Suspect]
     Active Substance: FOSAPREPITANT DIMEGLUMINE
     Dosage: 150 MG, ONCE
     Route: 042
     Dates: start: 20161221, end: 20161221
  2. ENDOXAN [Concomitant]
     Active Substance: CYCLOPHOSPHAMIDE
     Dosage: 1440 MG, ONCE (CYCLE 5)
     Route: 042
     Dates: start: 20161221, end: 20161221
  3. NEULASTA [Concomitant]
     Active Substance: PEGFILGRASTIM
     Dosage: 6 MG, ONCE
     Route: 058
     Dates: start: 20160929, end: 20160929
  4. VINCRISTINE SULFATE. [Concomitant]
     Active Substance: VINCRISTINE SULFATE
     Dosage: 2 MG, ONCE (CYCLE 4)
     Route: 042
     Dates: start: 20161130, end: 20161130
  5. MABTHERA [Concomitant]
     Active Substance: RITUXIMAB
     Dosage: 720 MG, ONCE, CYCLE 6
     Route: 042
     Dates: start: 20170111, end: 20170111
  6. ENDOXAN [Concomitant]
     Active Substance: CYCLOPHOSPHAMIDE
     Indication: CHEMOTHERAPY
     Dosage: 1440 MG, ONCE, CYCLE 1
     Route: 042
     Dates: start: 20160929, end: 20160929
  7. ENDOXAN [Concomitant]
     Active Substance: CYCLOPHOSPHAMIDE
     Dosage: 1440 MG, ONCE (CYCLE 3)
     Route: 042
     Dates: start: 20161109, end: 20161109
  8. DOXORUBICIN HYDROCHLORIDE. [Concomitant]
     Active Substance: DOXORUBICIN HYDROCHLORIDE
     Dosage: 95 MG, ONCE, CYCLE 6
     Route: 042
     Dates: start: 20170111, end: 20170111
  9. NEULASTA [Concomitant]
     Active Substance: PEGFILGRASTIM
     Dosage: 6 MG, ONCE
     Route: 058
     Dates: start: 20161022, end: 20161022
  10. NEULASTA [Concomitant]
     Active Substance: PEGFILGRASTIM
     Dosage: 6 MG, ONCE
     Route: 058
     Dates: start: 20170111, end: 20170111
  11. ALOXI [Concomitant]
     Active Substance: PALONOSETRON HYDROCHLORIDE
     Dosage: 1.5 ML, ONCE
     Route: 042
     Dates: start: 20161109, end: 20161109
  12. TACENOL [Concomitant]
     Dosage: 2 TABLET (1300 MG), ONCE
     Route: 048
     Dates: start: 20161221, end: 20161221
  13. SOLONDO [Concomitant]
     Active Substance: PREDNISOLONE
     Dosage: 100 MG (20 TABLETS), QD
     Route: 048
     Dates: start: 20161109, end: 20161113
  14. DOXORUBICIN HYDROCHLORIDE. [Concomitant]
     Active Substance: DOXORUBICIN HYDROCHLORIDE
     Dosage: 95 MG, ONCE, CYCLE 2
     Route: 042
     Dates: start: 20161022, end: 20161022
  15. ALOXI [Concomitant]
     Active Substance: PALONOSETRON HYDROCHLORIDE
     Dosage: 1.5 ML, ONCE
     Route: 042
     Dates: start: 20161022, end: 20161022
  16. CHLORPHENIRAMINE MALEATE. [Concomitant]
     Active Substance: CHLORPHENIRAMINE MALEATE
     Indication: PROPHYLAXIS
     Dosage: 4 MG, ONCE
     Route: 042
     Dates: start: 20160929, end: 20160929
  17. CHLORPHENIRAMINE MALEATE. [Concomitant]
     Active Substance: CHLORPHENIRAMINE MALEATE
     Dosage: 4 MG, ONCE
     Route: 042
     Dates: start: 20161221, end: 20161221
  18. TACENOL [Concomitant]
     Dosage: 2 TABLET (1300 MG), ONCE
     Route: 048
     Dates: start: 20170111, end: 20170111
  19. SOLONDO [Concomitant]
     Active Substance: PREDNISOLONE
     Indication: PROPHYLAXIS OF NAUSEA AND VOMITING
     Dosage: 100 MG (20 TABLETS), QD
     Route: 048
     Dates: start: 20160929, end: 20161003
  20. SOLONDO [Concomitant]
     Active Substance: PREDNISOLONE
     Dosage: 100 MG (20 TABLETS), QD
     Route: 048
     Dates: start: 20170111, end: 20170115
  21. EMEND (FOSAPREPITANT DIMEGLUMINE) [Suspect]
     Active Substance: FOSAPREPITANT DIMEGLUMINE
     Dosage: 150 MG, ONCE
     Route: 042
     Dates: start: 20161109, end: 20161109
  22. MABTHERA [Concomitant]
     Active Substance: RITUXIMAB
     Dosage: 720 MG, ONCE, CYCLE 3
     Route: 042
     Dates: start: 20161109, end: 20161109
  23. DOXORUBICIN HYDROCHLORIDE. [Concomitant]
     Active Substance: DOXORUBICIN HYDROCHLORIDE
     Dosage: 95 MG, ONCE, CYCLE 3
     Route: 042
     Dates: start: 20161109, end: 20161109
  24. NEULASTA [Concomitant]
     Active Substance: PEGFILGRASTIM
     Dosage: 6 MG, ONCE
     Route: 058
     Dates: start: 20161130, end: 20161130
  25. NEULASTA [Concomitant]
     Active Substance: PEGFILGRASTIM
     Dosage: 6 MG, ONCE
     Route: 058
     Dates: start: 20161221, end: 20161221
  26. ALOXI [Concomitant]
     Active Substance: PALONOSETRON HYDROCHLORIDE
     Indication: PROPHYLAXIS OF NAUSEA AND VOMITING
     Dosage: 1.5 ML, ONCE
     Route: 042
     Dates: start: 20160929, end: 20160929
  27. CHLORPHENIRAMINE MALEATE. [Concomitant]
     Active Substance: CHLORPHENIRAMINE MALEATE
     Dosage: 4 MG, ONCE
     Route: 042
     Dates: start: 20161109, end: 20161109
  28. CHLORPHENIRAMINE MALEATE. [Concomitant]
     Active Substance: CHLORPHENIRAMINE MALEATE
     Dosage: 4 MG, ONCE
     Route: 042
     Dates: start: 20161130, end: 20161130
  29. TACENOL [Concomitant]
     Dosage: 2 TABLET (1300 MG), ONCE
     Route: 048
     Dates: start: 20161022, end: 20161022
  30. TACENOL [Concomitant]
     Dosage: 2 TABLET (1300 MG), ONCE
     Route: 048
     Dates: start: 20161130, end: 20161130
  31. EMEND (FOSAPREPITANT DIMEGLUMINE) [Suspect]
     Active Substance: FOSAPREPITANT DIMEGLUMINE
     Dosage: 150 MG, ONCE
     Route: 042
     Dates: start: 20161022, end: 20161022
  32. EMEND (FOSAPREPITANT DIMEGLUMINE) [Suspect]
     Active Substance: FOSAPREPITANT DIMEGLUMINE
     Dosage: 150 MG, ONCE
     Route: 042
     Dates: start: 20161130, end: 20161130
  33. EMEND (FOSAPREPITANT DIMEGLUMINE) [Suspect]
     Active Substance: FOSAPREPITANT DIMEGLUMINE
     Dosage: 150 MG, ONCE
     Route: 042
     Dates: start: 20170111, end: 20170111
  34. VINCRISTINE SULFATE. [Concomitant]
     Active Substance: VINCRISTINE SULFATE
     Dosage: 2 MG, ONCE (CYCLE 2)
     Route: 042
     Dates: start: 20161022, end: 20161022
  35. VINCRISTINE SULFATE. [Concomitant]
     Active Substance: VINCRISTINE SULFATE
     Dosage: 2 MG, ONCE (CYCLE 5)
     Route: 042
     Dates: start: 20161221, end: 20161221
  36. MABTHERA [Concomitant]
     Active Substance: RITUXIMAB
     Dosage: 720 MG, ONCE, CYCLE 4
     Route: 042
     Dates: start: 20161130, end: 20161130
  37. MABTHERA [Concomitant]
     Active Substance: RITUXIMAB
     Dosage: 720 MG, ONCE, CYCLE 5
     Route: 042
     Dates: start: 20161221, end: 20161221
  38. ENDOXAN [Concomitant]
     Active Substance: CYCLOPHOSPHAMIDE
     Dosage: 1440 MG, ONCE (CYCLE 2)
     Route: 042
     Dates: start: 20161022, end: 20161022
  39. ENDOXAN [Concomitant]
     Active Substance: CYCLOPHOSPHAMIDE
     Dosage: 1440 MG, ONCE (CYCLE 4)
     Route: 042
     Dates: start: 20161130, end: 20161130
  40. ENDOXAN [Concomitant]
     Active Substance: CYCLOPHOSPHAMIDE
     Dosage: 1440 MG, ONCE (CYCLE 6)
     Route: 042
     Dates: start: 20170111, end: 20170111
  41. DOXORUBICIN HYDROCHLORIDE. [Concomitant]
     Active Substance: DOXORUBICIN HYDROCHLORIDE
     Indication: CHEMOTHERAPY
     Dosage: 95 MG, ONCE, CYCLE 1
     Route: 042
     Dates: start: 20160929, end: 20160929
  42. DOXORUBICIN HYDROCHLORIDE. [Concomitant]
     Active Substance: DOXORUBICIN HYDROCHLORIDE
     Dosage: 95 MG, ONCE, CYCLE 5
     Route: 042
     Dates: start: 20161221, end: 20161221
  43. NEULASTA [Concomitant]
     Active Substance: PEGFILGRASTIM
     Indication: PROPHYLAXIS
     Dosage: 6 MG, ONCE
     Route: 058
     Dates: start: 20160929, end: 20160929
  44. NEULASTA [Concomitant]
     Active Substance: PEGFILGRASTIM
     Dosage: 6 MG, ONCE
     Route: 058
     Dates: start: 20161109, end: 20161109
  45. ALOXI [Concomitant]
     Active Substance: PALONOSETRON HYDROCHLORIDE
     Dosage: 1.5 ML, ONCE
     Route: 042
     Dates: start: 20161221, end: 20161221
  46. CHLORPHENIRAMINE MALEATE. [Concomitant]
     Active Substance: CHLORPHENIRAMINE MALEATE
     Dosage: 4 MG, ONCE
     Route: 042
     Dates: start: 20161022, end: 20161022
  47. TACENOL [Concomitant]
     Dosage: 2 TABLET (1300 MG), ONCE
     Route: 048
     Dates: start: 20161109, end: 20161109
  48. SOLONDO [Concomitant]
     Active Substance: PREDNISOLONE
     Dosage: 100 MG (20 TABLETS), QD
     Route: 048
     Dates: start: 20161130, end: 20161204
  49. VINCRISTINE SULFATE. [Concomitant]
     Active Substance: VINCRISTINE SULFATE
     Dosage: 2 MG, ONCE (CYCLE 3)
     Route: 042
     Dates: start: 20161109, end: 20161109
  50. MABTHERA [Concomitant]
     Active Substance: RITUXIMAB
     Dosage: 720 MG, ONCE, CYCLE 2
     Route: 042
     Dates: start: 20161022, end: 20161022
  51. DOXORUBICIN HYDROCHLORIDE. [Concomitant]
     Active Substance: DOXORUBICIN HYDROCHLORIDE
     Dosage: 95 MG, ONCE, CYCLE 4
     Route: 042
     Dates: start: 20161130, end: 20161130
  52. ALOXI [Concomitant]
     Active Substance: PALONOSETRON HYDROCHLORIDE
     Dosage: 1.5 ML, ONCE
     Route: 042
     Dates: start: 20161130, end: 20161130
  53. ALOXI [Concomitant]
     Active Substance: PALONOSETRON HYDROCHLORIDE
     Dosage: 1.5 ML, ONCE
     Route: 042
     Dates: start: 20170111, end: 20170111
  54. CHLORPHENIRAMINE MALEATE. [Concomitant]
     Active Substance: CHLORPHENIRAMINE MALEATE
     Dosage: 4 MG, ONCE
     Route: 042
     Dates: start: 20170111, end: 20170111
  55. SOLONDO [Concomitant]
     Active Substance: PREDNISOLONE
     Dosage: 100 MG (20 TABLETS), QD
     Route: 048
     Dates: start: 20161022, end: 20161026
  56. SOLONDO [Concomitant]
     Active Substance: PREDNISOLONE
     Dosage: 100 MG (20 TABLETS), QD
     Route: 048
     Dates: start: 20161221, end: 20161225
  57. EMEND (FOSAPREPITANT DIMEGLUMINE) [Suspect]
     Active Substance: FOSAPREPITANT DIMEGLUMINE
     Indication: PROPHYLAXIS OF NAUSEA AND VOMITING
     Dosage: 150 MG, ONCE
     Route: 042
     Dates: start: 20160929, end: 20160929
  58. VINCRISTINE SULFATE. [Concomitant]
     Active Substance: VINCRISTINE SULFATE
     Indication: CHEMOTHERAPY
     Dosage: 2 MG, ONCE, CYCLE 1
     Route: 042
     Dates: start: 20160929, end: 20160929
  59. VINCRISTINE SULFATE. [Concomitant]
     Active Substance: VINCRISTINE SULFATE
     Dosage: 2 MG, ONCE (CYCLE 6)
     Route: 042
     Dates: start: 20170111, end: 20170111
  60. MABTHERA [Concomitant]
     Active Substance: RITUXIMAB
     Indication: CHEMOTHERAPY
     Dosage: 720 MG, ONCE, CYCLE 1
     Route: 042
     Dates: start: 20160929, end: 20160929
  61. TACENOL [Concomitant]
     Indication: PAIN PROPHYLAXIS
     Dosage: 2 TABLET (1300 MG), ONCE
     Route: 048
     Dates: start: 20160929, end: 20160929

REACTIONS (3)
  - Haematuria [Recovered/Resolved]
  - Medical device site thrombosis [Recovering/Resolving]
  - Nasopharyngitis [Recovered/Resolved]

NARRATIVE: CASE EVENT DATE: 20160929
